FAERS Safety Report 10297495 (Version 1)
Quarter: 2014Q3

REPORT INFORMATION
  Report Type: Spontaneous
  Country: US (occurrence: US)
  Receive Date: 20140711
  Receipt Date: 20140711
  Transmission Date: 20150326
  Serious: No
  Sender: FDA-Public Use
  Company Number: US-JNJFOC-20140700125

PATIENT
  Age: 58 Year
  Sex: Female
  Weight: 66.68 kg

DRUGS (2)
  1. FENTANYL TRANSDERMAL SYSTEM [Suspect]
     Active Substance: FENTANYL
     Indication: PAIN
     Route: 062
     Dates: start: 2012
  2. PERCOCET [Concomitant]
     Active Substance: ACETAMINOPHEN\OXYCODONE HYDROCHLORIDE
     Indication: PAIN
     Route: 048
     Dates: start: 2010

REACTIONS (5)
  - Drug withdrawal syndrome [Recovered/Resolved]
  - Product quality issue [Unknown]
  - Drug dose omission [Unknown]
  - Product adhesion issue [Unknown]
  - Product colour issue [Unknown]

NARRATIVE: CASE EVENT DATE: 201405
